FAERS Safety Report 10948394 (Version 1)
Quarter: 2015Q1

REPORT INFORMATION
  Report Type: Spontaneous
  Country: AT (occurrence: AT)
  Receive Date: 20150324
  Receipt Date: 20150324
  Transmission Date: 20150721
  Serious: Yes (Hospitalization)
  Sender: FDA-Public Use
  Company Number: AT-PFIZER INC-2014291753

PATIENT
  Age: 82 Year
  Sex: Female
  Weight: 70 kg

DRUGS (26)
  1. VALERIANA OFFICINALIS ROOT [Concomitant]
     Active Substance: VALERIAN
     Dosage: 1 DF, UNK
     Dates: end: 20140717
  2. MIRTAZAPINE. [Suspect]
     Active Substance: MIRTAZAPINE
     Dosage: 15 MG, UNK
     Route: 048
     Dates: start: 20140721, end: 20140722
  3. PANTOPRAZOLE [Concomitant]
     Active Substance: PANTOPRAZOLE SODIUM
     Dosage: 20 MG, UNK
     Route: 048
  4. ANAEROBEX [Concomitant]
     Dosage: 1 DF, 3X/DAY
     Dates: start: 201407, end: 20140720
  5. PYRIDOXINE HYDROCHLORIDE. [Concomitant]
     Active Substance: PYRIDOXINE HYDROCHLORIDE
     Dosage: 1 DF, 3X/DAY
     Dates: start: 201407, end: 20140722
  6. THYREX [Concomitant]
     Active Substance: LEVOTHYROXINE SODIUM
     Dosage: 100 UG, UNK
     Dates: end: 20140717
  7. D-CALSOR [Concomitant]
     Dosage: 1 DF, UNK
  8. MOTRIM [Suspect]
     Active Substance: TRIMETHOPRIM
     Dosage: 400 MG, 2X/DAY
     Route: 048
     Dates: start: 20140725, end: 20140728
  9. THYREX [Concomitant]
     Active Substance: LEVOTHYROXINE SODIUM
     Dosage: UNK
  10. FRAGMIN [Suspect]
     Active Substance: DALTEPARIN SODIUM
     Dosage: 7500 MG, 2X/DAY
     Route: 058
     Dates: start: 201407, end: 20140818
  11. THYREX [Concomitant]
     Active Substance: LEVOTHYROXINE SODIUM
     Dosage: 125 UG, UNK
     Dates: start: 20140718
  12. TEMESTA [Concomitant]
     Active Substance: LORAZEPAM
     Dosage: 0.5 MG, UNK
     Dates: start: 20140820
  13. IBANDRONATE SODIUM. [Concomitant]
     Active Substance: IBANDRONATE SODIUM
     Dosage: 150 MG, UNK
     Dates: end: 20140808
  14. MIRTAZAPINE. [Suspect]
     Active Substance: MIRTAZAPINE
     Dosage: 30 MG, UNK
     Route: 048
     Dates: start: 20140723, end: 20140729
  15. OLEOVIT-D3 [Concomitant]
     Dosage: 28 GTT, UNK
     Dates: start: 20140805
  16. MIRTAZAPINE. [Suspect]
     Active Substance: MIRTAZAPINE
     Dosage: 45 MG, UNK
     Dates: start: 20140805, end: 20140805
  17. OLANZAPINE. [Concomitant]
     Active Substance: OLANZAPINE
     Dosage: 25 MG, UNK
     Dates: start: 201405, end: 20140717
  18. ATARAX [Concomitant]
     Active Substance: HYDROXYZINE\HYDROXYZINE HYDROCHLORIDE
     Dosage: 25 MG, UNK
     Dates: start: 20140717, end: 20140717
  19. FILGRASTIM [Concomitant]
     Active Substance: FILGRASTIM
     Dosage: 1 DF, UNK
     Dates: start: 20140804, end: 20140804
  20. VALERIANA OFFICINALIS ROOT [Concomitant]
     Active Substance: VALERIAN
     Dosage: 1 DF, UNK
     Dates: start: 20140809
  21. TEBOFORTAN [Concomitant]
     Dosage: 80 MG, UNK
     Dates: end: 20140717
  22. MIRTAZAPINE. [Suspect]
     Active Substance: MIRTAZAPINE
     Dosage: 45 MG, UNK
     Route: 048
     Dates: start: 20140730, end: 20140803
  23. MOTRIM [Suspect]
     Active Substance: TRIMETHOPRIM
     Dosage: 200 MG, 2X/DAY
     Route: 048
     Dates: start: 20140722, end: 20140724
  24. TEMESTA [Concomitant]
     Active Substance: LORAZEPAM
     Dosage: 0.25 MG, UNK
     Dates: start: 20140820
  25. DICLOFENAC [Concomitant]
     Active Substance: DICLOFENAC
     Dosage: UNK
     Dates: end: 20140717
  26. VITAMEDIN INTRAVENOUS [Concomitant]
     Active Substance: CYANOCOBALAMIN\PYRIDOXINE HYDROCHLORIDE\THIAMINE
     Dosage: 1 DF, UNK
     Dates: end: 20140717

REACTIONS (1)
  - Neutropenia [Unknown]

NARRATIVE: CASE EVENT DATE: 20140804
